FAERS Safety Report 10750809 (Version 1)
Quarter: 2015Q1

REPORT INFORMATION
  Report Type: Spontaneous
  Country: US (occurrence: US)
  Receive Date: 20150130
  Receipt Date: 20150130
  Transmission Date: 20150721
  Serious: Yes (Other)
  Sender: FDA-Public Use
  Company Number: US-ROCHE-1522494

PATIENT
  Sex: Male

DRUGS (6)
  1. AVASTIN [Suspect]
     Active Substance: BEVACIZUMAB
     Indication: AGE-RELATED MACULAR DEGENERATION
     Route: 050
  2. AMLODIPINE [Concomitant]
     Active Substance: AMLODIPINE BESYLATE
  3. AVASTIN [Suspect]
     Active Substance: BEVACIZUMAB
     Route: 065
     Dates: start: 20110707
  4. REMICADE [Concomitant]
     Active Substance: INFLIXIMAB
  5. FLAGYL [Concomitant]
     Active Substance: METRONIDAZOLE\METRONIDAZOLE HYDROCHLORIDE
  6. IMURAN [Concomitant]
     Active Substance: AZATHIOPRINE

REACTIONS (11)
  - Off label use [Unknown]
  - Vitreous opacities [Unknown]
  - Visual acuity reduced [Unknown]
  - Retinal tear [Unknown]
  - Endophthalmitis [Unknown]
  - Retinal vascular disorder [Unknown]
  - Eye injury [Unknown]
  - Suspected transmission of an infectious agent via product [Unknown]
  - Anxiety [Unknown]
  - Blindness unilateral [Unknown]
  - Cataract [Unknown]
